FAERS Safety Report 5925744-1 (Version None)
Quarter: 2008Q4

REPORT INFORMATION
  Report Type: 
  Country: None (occurrence: None)
  Receive Date: 20081021
  Receipt Date: 20081016
  Transmission Date: 20090506
  Serious: Yes (Life-Threatening, Hospitalization)
  Sender: FDA-Public Use
  Company Number: JP-BRACCO-001152

PATIENT
  Age: 60 Year
  Sex: Male

DRUGS (11)
  1. IOPAMIDOL [Suspect]
     Indication: ANGIOPLASTY
     Route: 013
     Dates: start: 20080912, end: 20080912
  2. IOPAMIDOL [Suspect]
     Indication: ARTERIOSCLEROSIS OBLITERANS
     Route: 013
     Dates: start: 20080912, end: 20080912
  3. ANTIHISTAMINES [Concomitant]
     Dosage: ORAL
     Route: 065
     Dates: start: 20080912, end: 20080912
  4. PLAVIX [Concomitant]
     Indication: ANGIOPLASTY
     Route: 048
     Dates: start: 20080826
  5. CORTICOSTEROIDS [Concomitant]
     Route: 048
     Dates: start: 20080912, end: 20080912
  6. ASPIRIN [Concomitant]
     Indication: ANGIOPLASTY
     Route: 048
     Dates: start: 20080826
  7. AMARYL [Concomitant]
     Indication: DIABETES MELLITUS
     Route: 048
  8. MELBIN [Concomitant]
     Indication: DIABETES MELLITUS
     Route: 048
  9. ANPLAG [Concomitant]
     Indication: ARTERIOSCLEROSIS OBLITERANS
     Route: 048
  10. SOL-MELCORT [Concomitant]
     Route: 065
     Dates: start: 20080912, end: 20080912
  11. IOPAMIDOL [Concomitant]
     Indication: ARTERIOGRAM
     Route: 042
     Dates: start: 20080825, end: 20080825

REACTIONS (3)
  - CHOKING SENSATION [None]
  - SHOCK [None]
  - TOXIC SKIN ERUPTION [None]
